FAERS Safety Report 6494231-7 (Version None)
Quarter: 2009Q4

REPORT INFORMATION
  Report Type: 
  Country: None (occurrence: None)
  Receive Date: 20091214
  Receipt Date: 20090126
  Transmission Date: 20100525
  Serious: No
  Sender: FDA-Public Use
  Company Number: US-BRISTOL-MYERS SQUIBB COMPANY-14484000

PATIENT
  Age: 46 Year
  Sex: Male
  Weight: 102 kg

DRUGS (10)
  1. ABILIFY [Suspect]
     Indication: DEPRESSION
     Dosage: STARTED WITH 2.5 MG THEN INCREASED TO 5 MG
     Dates: start: 20090101
  2. ABILIFY [Suspect]
     Indication: BIPOLAR DISORDER
     Dosage: STARTED WITH 2.5 MG THEN INCREASED TO 5 MG
     Dates: start: 20090101
  3. SIMVASTATIN [Concomitant]
  4. WELLBUTRIN XL [Concomitant]
  5. LAMICTAL [Concomitant]
  6. RANITIDINE [Concomitant]
  7. ATENOLOL [Concomitant]
  8. LISINOPRIL [Concomitant]
  9. LEVOTHROID [Concomitant]
  10. OMEPRAZOLE [Concomitant]

REACTIONS (1)
  - ABDOMINAL DISCOMFORT [None]
